FAERS Safety Report 9500967 (Version 1)
Quarter: 2013Q3

REPORT INFORMATION
  Report Type: Spontaneous
  Country: GB (occurrence: GB)
  Receive Date: 20130905
  Receipt Date: 20130905
  Transmission Date: 20140515
  Serious: Yes (Other)
  Sender: FDA-Public Use
  Company Number: PHHY2013GB094073

PATIENT
  Age: 18 Year
  Sex: Female
  Weight: 53.9 kg

DRUGS (2)
  1. FLUOXETINE [Suspect]
     Dosage: 20 MG, QD
     Route: 048
  2. CIRCADIN [Concomitant]

REACTIONS (10)
  - Fear of weight gain [Recovering/Resolving]
  - Eating disorder [Recovering/Resolving]
  - Feeling abnormal [Recovering/Resolving]
  - Abnormal behaviour [Recovering/Resolving]
  - Self-injurious ideation [Recovering/Resolving]
  - Negative thoughts [Recovering/Resolving]
  - Decreased appetite [Recovering/Resolving]
  - Somnolence [Recovered/Resolved]
  - Product substitution issue [Unknown]
  - Drug ineffective [Unknown]
